FAERS Safety Report 7127372-1 (Version None)
Quarter: 2010Q4

REPORT INFORMATION
  Report Type: 
  Country: None (occurrence: None)
  Receive Date: 20101129
  Receipt Date: 20100528
  Transmission Date: 20110411
  Serious: No
  Sender: FDA-Public Use
  Company Number: US-PFIZER INC-2010068189

PATIENT
  Sex: Male
  Weight: 104.31 kg

DRUGS (3)
  1. VIAGRA [Suspect]
     Indication: ERECTILE DYSFUNCTION
     Dosage: 50 MG, AS NEEDED
     Route: 048
  2. LEVOTHYROXINE [Concomitant]
     Indication: THYROID DISORDER
     Dosage: UNK
  3. CRESTOR [Concomitant]
     Indication: BLOOD CHOLESTEROL
     Dosage: 10 MG, UNK

REACTIONS (2)
  - DRUG INEFFECTIVE [None]
  - FLUSHING [None]
